FAERS Safety Report 4975793-5 (Version None)
Quarter: 2006Q2

REPORT INFORMATION
  Report Type: 
  Country: None (occurrence: None)
  Receive Date: 20060411
  Receipt Date: 20060323
  Transmission Date: 20061013
  Serious: Yes (Death, Hospitalization)
  Sender: FDA-Public Use
  Company Number: IN200603006111

PATIENT
  Age: 34 Year
  Sex: Female
  Weight: 80 kg

DRUGS (5)
  1. HUMALOG [Suspect]
     Indication: DIABETES MELLITUS
     Dosage: 300 IU DAILY (1/D), SUBCUTANEOUS
     Route: 058
     Dates: start: 20060314, end: 20060320
  2. CEFOPERAZONE W/SULBACTAM (CEFOPERAZONE, SULBACTAM) [Concomitant]
  3. DECADRON [Concomitant]
  4. LASIX   /SCH/ (FUROSEMIDE, FUROSEMIDE SODIUM) INJECTION [Concomitant]
  5. RANITIDINE (RANITIDINE) INJECTION [Concomitant]

REACTIONS (4)
  - BRAIN OEDEMA [None]
  - DIABETES MELLITUS INADEQUATE CONTROL [None]
  - DIABETIC HYPERGLYCAEMIC COMA [None]
  - SEPSIS [None]
